FAERS Safety Report 15698393 (Version 1)
Quarter: 2018Q4

REPORT INFORMATION
  Report Type: Spontaneous
  Country: US (occurrence: US)
  Receive Date: 20181206
  Receipt Date: 20181206
  Transmission Date: 20190205
  Serious: No
  Sender: FDA-Public Use
  Company Number: None

PATIENT
  Age: 55 Year
  Sex: Female
  Weight: 76.5 kg

DRUGS (18)
  1. AMPHETAMINE-DEXTROAMPHETAMINE [Suspect]
     Active Substance: AMPHETAMINE SULFATE\DEXTROAMPHETAMINE
     Indication: FATIGUE
     Dosage: ?          QUANTITY:90 TABLET(S);?
     Route: 048
  2. WARFARIN [Concomitant]
     Active Substance: WARFARIN
  3. LEVOTHYROXINE. [Concomitant]
     Active Substance: LEVOTHYROXINE
  4. HYDROXYCHLOROQUINE [Concomitant]
     Active Substance: HYDROXYCHLOROQUINE
  5. AMPHETAMINE-DEXTROAMPHETAMINE [Suspect]
     Active Substance: AMPHETAMINE SULFATE\DEXTROAMPHETAMINE
     Indication: ATTENTION DEFICIT/HYPERACTIVITY DISORDER
     Dosage: ?          QUANTITY:90 TABLET(S);?
     Route: 048
  6. ADDERALL [Concomitant]
     Active Substance: AMPHETAMINE ASPARTATE\AMPHETAMINE SULFATE\DEXTROAMPHETAMINE SACCHARATE\DEXTROAMPHETAMINE SULFATE
  7. PRILOSEC, [Concomitant]
  8. ARIPIPRAZOLE. [Concomitant]
     Active Substance: ARIPIPRAZOLE
  9. BUPROPION XL [Concomitant]
     Active Substance: BUPROPION
  10. VENLAFAXINE XR [Concomitant]
     Active Substance: VENLAFAXINE HYDROCHLORIDE
  11. REPATHA [Concomitant]
     Active Substance: EVOLOCUMAB
  12. FENOFIBRATE. [Concomitant]
     Active Substance: FENOFIBRATE
  13. MULTIVITAMIN [Concomitant]
     Active Substance: VITAMINS
  14. PROBIOTICS [Concomitant]
     Active Substance: PROBIOTICS NOS
  15. AMOTRIGINE [Concomitant]
  16. BUPRENORPHINE. [Concomitant]
     Active Substance: BUPRENORPHINE
  17. METOPROLOL TARTRATE. [Concomitant]
     Active Substance: METOPROLOL TARTRATE
  18. DOCUSATE SODIUM. [Concomitant]
     Active Substance: DOCUSATE SODIUM

REACTIONS (9)
  - Irritability [None]
  - Anxiety [None]
  - Dysphoria [None]
  - Fatigue [None]
  - Headache [None]
  - Nausea [None]
  - Product substitution issue [None]
  - Palpitations [None]
  - Drug ineffective [None]

NARRATIVE: CASE EVENT DATE: 20181117
